FAERS Safety Report 7880303-9 (Version None)
Quarter: 2011Q4

REPORT INFORMATION
  Report Type: 
  Country: None (occurrence: None)
  Receive Date: 20111101
  Receipt Date: 20111021
  Transmission Date: 20120403
  Serious: Yes (Hospitalization, Other)
  Sender: FDA-Public Use
  Company Number: US-BAYER-2011-050354

PATIENT
  Age: 16 Year
  Sex: Female
  Weight: 102.4 kg

DRUGS (2)
  1. YASMIN [Suspect]
     Indication: ACNE
  2. YASMIN [Suspect]
     Indication: PREMENSTRUAL SYNDROME

REACTIONS (5)
  - INJURY [None]
  - CHOLECYSTITIS CHRONIC [None]
  - CHOLELITHIASIS [None]
  - PANCREATITIS [None]
  - PAIN [None]
